FAERS Safety Report 9449996 (Version 2)
Quarter: 2013Q4

REPORT INFORMATION
  Report Type: Spontaneous
  Country: BR (occurrence: BR)
  Receive Date: 20130809
  Receipt Date: 20131108
  Transmission Date: 20140711
  Serious: Yes (Other)
  Sender: FDA-Public Use
  Company Number: BR-PFIZER INC-2013229974

PATIENT
  Age: 41 Year
  Sex: Female
  Weight: 64 kg

DRUGS (5)
  1. PRISTIQ [Suspect]
     Indication: DEPRESSION
     Dosage: 50 MG, ONCE A DAY
     Route: 048
     Dates: start: 20130731
  2. BUP [Suspect]
     Indication: DEPRESSION
     Dosage: 150 MG, ONCE A DAY
     Dates: start: 20121114, end: 2013
  3. BUP [Suspect]
     Indication: ANXIETY
  4. RIVOTRIL [Concomitant]
     Indication: ANXIETY
     Dosage: 0.25 MG, ONCE A DAY
     Dates: start: 20121114
  5. ANNITA [Concomitant]
     Indication: HELMINTHIC INFECTION
     Dosage: EVERY 12 HOURS DURING 3 DAYS
     Dates: start: 20130731

REACTIONS (5)
  - Mental impairment [Not Recovered/Not Resolved]
  - Dizziness [Not Recovered/Not Resolved]
  - Feeling abnormal [Not Recovered/Not Resolved]
  - Fatigue [Unknown]
  - Discomfort [Unknown]
